FAERS Safety Report 5142581-9 (Version None)
Quarter: 2006Q4

REPORT INFORMATION
  Report Type: 
  Country: None (occurrence: None)
  Receive Date: 20061027
  Receipt Date: 20061006
  Transmission Date: 20070319
  Serious: Yes (Other)
  Sender: FDA-Public Use
  Company Number: US200609006775

PATIENT
  Age: 50 Year
  Sex: Male

DRUGS (8)
  1. STRATTERA [Suspect]
  2. COUMADIN [Concomitant]
  3. QUINIDINE (QUINIDINE) [Concomitant]
  4. VERAPAMIL [Concomitant]
  5. PRILOSEC [Concomitant]
  6. CELEBREX [Concomitant]
  7. ELAVIL [Concomitant]
  8. LOMOTIL [Concomitant]

REACTIONS (1)
  - JAW OPERATION [None]
